FAERS Safety Report 9069121 (Version 1)
Quarter: 2013Q1

REPORT INFORMATION
  Report Type: Spontaneous
  Country: US (occurrence: None)
  Receive Date: 20130213
  Receipt Date: 20130213
  Transmission Date: 20140127
  Serious: Yes (Hospitalization)
  Sender: FDA-Public Use
  Company Number: None

PATIENT
  Age: 84 Year
  Sex: Male
  Weight: 69.9 kg

DRUGS (16)
  1. RIVAROXABAN [Suspect]
     Indication: ATRIAL FIBRILLATION
     Route: 048
     Dates: start: 20120501, end: 20120614
  2. RIVAROXABAN [Suspect]
     Indication: CEREBROVASCULAR ACCIDENT PROPHYLAXIS
     Route: 048
     Dates: start: 20120501, end: 20120614
  3. ASPIRIN [Suspect]
     Indication: CORONARY ARTERIAL STENT INSERTION
     Route: 048
     Dates: start: 20061001, end: 20120614
  4. ASPIRIN [Suspect]
     Indication: CORONARY ARTERY DISEASE
     Route: 048
     Dates: start: 20061001, end: 20120614
  5. CHOLECALCIFEROL [Concomitant]
  6. ACID [Concomitant]
  7. LEVOTHYROXINE [Concomitant]
  8. LISINOPRIL [Concomitant]
  9. FISH OIL [Concomitant]
  10. OMEPRAZOLE [Concomitant]
  11. PRAVASTATIN [Concomitant]
  12. PREDNISONE [Concomitant]
  13. PSYLLIUM-FIBERALL [Concomitant]
  14. SITAGLIPTIN [Concomitant]
  15. TRAMADOL [Concomitant]
  16. AMOXICILLIN [Concomitant]

REACTIONS (6)
  - Gastrointestinal haemorrhage [None]
  - Abnormal faeces [None]
  - Haemoglobin decreased [None]
  - Platelet count decreased [None]
  - Blood pressure diastolic decreased [None]
  - Occult blood positive [None]
